FAERS Safety Report 8764299 (Version 1)
Quarter: 2012Q4

REPORT INFORMATION
  Report Type: 
  Country: FR (occurrence: FR)
  Receive Date: 20120831
  Receipt Date: 20120831
  Transmission Date: 20130627
  Serious: Yes (Hospitalization)
  Sender: FDA-Public Use
  Company Number: FR-VERTEX PHARMACEUTICAL INC.-2012-020214

PATIENT
  Age: 66 Year
  Sex: Female

DRUGS (8)
  1. INCIVO [Suspect]
     Indication: HEPATITIS C
     Dosage: 375 mg, UNK
     Route: 048
     Dates: start: 201207
  2. COPEGUS [Suspect]
     Indication: HEPATITIS C
     Dosage: UNK
     Route: 065
     Dates: start: 201207, end: 20120716
  3. PEGASYS [Suspect]
     Indication: HEPATITIS C
     Dosage: UNK
     Route: 065
     Dates: start: 201207, end: 20120713
  4. HYTACAND [Concomitant]
     Dosage: Dosage Form: Tablet, 16mg/12.5mg
     Route: 048
  5. SPIRONOLACTONE [Concomitant]
  6. SINGULAIR [Concomitant]
     Route: 048
  7. SERETIDE [Concomitant]
  8. PRIMPERAN [Concomitant]

REACTIONS (1)
  - Haemolytic anaemia [Recovered/Resolved]
